FAERS Safety Report 13599147 (Version 1)
Quarter: 2017Q2

REPORT INFORMATION
  Report Type: Spontaneous
  Country: GB (occurrence: GB)
  Receive Date: 20170531
  Receipt Date: 20170531
  Transmission Date: 20170830
  Serious: Yes (Other)
  Sender: FDA-Public Use
  Company Number: PHFR2017GB003879

PATIENT
  Age: 47 Year
  Sex: Male

DRUGS (1)
  1. LORATADINE. [Suspect]
     Active Substance: LORATADINE
     Indication: SEASONAL ALLERGY
     Dosage: 10 MG, UNK
     Route: 048
     Dates: start: 201504, end: 201704

REACTIONS (4)
  - Depression [Recovered/Resolved]
  - Paranoia [Recovered/Resolved]
  - Amnesia [Recovered/Resolved]
  - Aggression [Recovered/Resolved]
